FAERS Safety Report 16213599 (Version 1)
Quarter: 2019Q2

REPORT INFORMATION
  Report Type: Spontaneous
  Country: FR (occurrence: FR)
  Receive Date: 20190418
  Receipt Date: 20190418
  Transmission Date: 20190711
  Serious: Yes (Hospitalization)
  Sender: FDA-Public Use
  Company Number: FR-MYLANLABS-2019M1036617

PATIENT
  Age: 56 Year
  Sex: Male
  Weight: 65 kg

DRUGS (1)
  1. KETOPROFEN. [Suspect]
     Active Substance: KETOPROFEN
     Indication: BACK PAIN
     Dosage: 200 MILLIGRAM, QD
     Route: 048
     Dates: start: 20181024, end: 20181026

REACTIONS (1)
  - Angioedema [Recovered/Resolved]

NARRATIVE: CASE EVENT DATE: 20181027
